FAERS Safety Report 4968953-0 (Version None)
Quarter: 2006Q2

REPORT INFORMATION
  Report Type: 
  Country: None (occurrence: None)
  Receive Date: 20060411
  Receipt Date: 20051025
  Transmission Date: 20061013
  Serious: Yes (Hospitalization)
  Sender: FDA-Public Use
  Company Number: US-MERCK-0510USA09235

PATIENT
  Age: 62 Year
  Sex: Male
  Weight: 86 kg

DRUGS (5)
  1. VIOXX [Suspect]
     Indication: HYPOAESTHESIA
     Route: 048
     Dates: start: 20001207, end: 20001221
  2. VIOXX [Suspect]
     Route: 048
     Dates: start: 20010518, end: 20020203
  3. VIOXX [Suspect]
     Indication: MUSCULOSKELETAL PAIN
     Route: 048
     Dates: start: 20001207, end: 20001221
  4. VIOXX [Suspect]
     Route: 048
     Dates: start: 20010518, end: 20020203
  5. ASPIRIN [Concomitant]
     Route: 065
     Dates: start: 20001212, end: 20020101

REACTIONS (11)
  - ARTHRALGIA [None]
  - CEREBROVASCULAR ACCIDENT [None]
  - CERUMEN IMPACTION [None]
  - DEPRESSION [None]
  - HAEMORRHOIDS [None]
  - HEADACHE [None]
  - HYPERTENSION [None]
  - IMPAIRED SELF-CARE [None]
  - SEXUAL DYSFUNCTION [None]
  - SINUSITIS [None]
  - SPINAL OSTEOARTHRITIS [None]
